FAERS Safety Report 10013414 (Version 1)
Quarter: 2014Q1

REPORT INFORMATION
  Report Type: Spontaneous
  Country: US (occurrence: US)
  Receive Date: 20140314
  Receipt Date: 20140314
  Transmission Date: 20141002
  Serious: No
  Sender: FDA-Public Use
  Company Number: US-PFIZER INC-2014073921

PATIENT
  Age: 33 Year
  Sex: Female

DRUGS (2)
  1. CHANTIX [Suspect]
     Indication: SMOKING CESSATION THERAPY
     Dosage: UNK
     Dates: start: 201302
  2. XANAX [Suspect]
     Indication: INSOMNIA
     Dosage: UNK

REACTIONS (4)
  - Dyspepsia [Recovered/Resolved]
  - Abnormal dreams [Recovered/Resolved]
  - Constipation [Recovered/Resolved]
  - Intentional drug misuse [Unknown]
